FAERS Safety Report 9201578 (Version 1)
Quarter: 2013Q2

REPORT INFORMATION
  Report Type: Spontaneous
  Country: US (occurrence: US)
  Receive Date: 20130401
  Receipt Date: 20130401
  Transmission Date: 20140414
  Serious: Yes (Other)
  Sender: FDA-Public Use
  Company Number: US-ASTRAZENECA-2013SE19498

PATIENT
  Age: 65 Year
  Sex: Male
  Weight: 77.1 kg

DRUGS (6)
  1. PRILOSEC [Suspect]
     Indication: GASTROOESOPHAGEAL REFLUX DISEASE
     Route: 048
  2. CRESTOR [Suspect]
     Indication: LIPIDS INCREASED
     Route: 048
  3. CRESTOR [Suspect]
     Indication: CORONARY ARTERIAL STENT INSERTION
     Route: 048
  4. PRILOSEC OTC [Concomitant]
     Indication: GASTROOESOPHAGEAL REFLUX DISEASE
     Route: 048
  5. UNKNOWN ANTI PLATELET AGENT [Concomitant]
     Indication: STENT PLACEMENT
  6. BABY ASPIRIN [Concomitant]
     Indication: STENT PLACEMENT

REACTIONS (5)
  - Coronary artery occlusion [Unknown]
  - Weight decreased [Unknown]
  - Adverse event [Unknown]
  - Dyspnoea exertional [Unknown]
  - Intentional drug misuse [Unknown]
